FAERS Safety Report 23535075 (Version 1)
Quarter: 2024Q1

REPORT INFORMATION
  Report Type: Spontaneous
  Country: DE (occurrence: DE)
  Receive Date: 20240217
  Receipt Date: 20240217
  Transmission Date: 20240409
  Serious: Yes (Other)
  Sender: FDA-Public Use
  Company Number: DE-SANDOZ-SDZ2024DE013262

PATIENT
  Age: 54 Year
  Sex: Male

DRUGS (1)
  1. AMOXICILLIN\CLAVULANATE POTASSIUM [Suspect]
     Active Substance: AMOXICILLIN\CLAVULANATE POTASSIUM
     Indication: Laryngitis
     Dosage: UNK
     Route: 065
     Dates: start: 20220720

REACTIONS (17)
  - Clostridial infection [Unknown]
  - Arrhythmia [Unknown]
  - Periorbital swelling [Unknown]
  - Erythema [Unknown]
  - Aphthous ulcer [Unknown]
  - Migraine [Unknown]
  - Histamine intolerance [Unknown]
  - Impaired quality of life [Unknown]
  - Gastrointestinal disorder [Unknown]
  - Loss of personal independence in daily activities [Unknown]
  - Diamine oxidase deficiency [Unknown]
  - Memory impairment [Unknown]
  - Fatigue [Unknown]
  - Memory impairment [Unknown]
  - Adverse event [Unknown]
  - Pruritus [Unknown]
  - Drug ineffective [Unknown]

NARRATIVE: CASE EVENT DATE: 20220701
